FAERS Safety Report 7218549-5 (Version None)
Quarter: 2011Q1

REPORT INFORMATION
  Report Type: 
  Country: None (occurrence: None)
  Receive Date: 20110110
  Receipt Date: 20110106
  Transmission Date: 20110831
  Serious: Yes (Death)
  Sender: FDA-Public Use
  Company Number: DE-JNJFOC-20110102133

PATIENT
  Age: 73 Year
  Weight: 90 kg

DRUGS (5)
  1. REOPRO [Suspect]
     Indication: ILL-DEFINED DISORDER
  2. HEPARIN [Suspect]
     Indication: ILL-DEFINED DISORDER
  3. PRASUGREL [Suspect]
     Indication: ACUTE CORONARY SYNDROME
  4. PRASUGREL [Suspect]
  5. ASPISOL [Suspect]
     Indication: ILL-DEFINED DISORDER

REACTIONS (1)
  - CARDIOGENIC SHOCK [None]
